FAERS Safety Report 12911088 (Version 1)
Quarter: 2016Q4

REPORT INFORMATION
  Report Type: Spontaneous
  Country: US (occurrence: US)
  Receive Date: 20161104
  Receipt Date: 20161104
  Transmission Date: 20170207
  Serious: No
  Sender: FDA-Public Use
  Company Number: US-PFIZER INC-2016510553

PATIENT
  Age: 56 Year
  Sex: Female

DRUGS (2)
  1. IBRANCE [Suspect]
     Active Substance: PALBOCICLIB
     Dosage: 100 MG, DAILY (DAILY FOR 21 DAYS)
     Route: 048
     Dates: start: 20151010
  2. IBRANCE [Suspect]
     Active Substance: PALBOCICLIB
     Indication: BONE CANCER
     Dosage: 100 MG, DAILY (DAILY FOR 21 DAYS)
     Route: 048
     Dates: start: 20151013

REACTIONS (3)
  - Product use issue [Unknown]
  - White blood cell count decreased [Unknown]
  - Fatigue [Unknown]
